FAERS Safety Report 9672420 (Version 1)
Quarter: 2013Q4

REPORT INFORMATION
  Report Type: Spontaneous
  Country: IN (occurrence: None)
  Receive Date: 20131105
  Receipt Date: 20131105
  Transmission Date: 20140711
  Serious: Yes (Life-Threatening)
  Sender: FDA-Public Use
  Company Number: CIP-2013-00197

PATIENT
  Age: 52 Year
  Sex: Male
  Weight: 49 kg

DRUGS (3)
  1. CYTOCARB(CARBOPLATIN)(INFUSION) [Suspect]
     Indication: LUNG NEOPLASM MALIGNANT
     Route: 042
     Dates: start: 20131012, end: 20131012
  2. PACLITAXEL(PACLITAXEL) [Concomitant]
  3. ERYTHROPOIETIN(ERYTHROPOIETIN) [Concomitant]

REACTIONS (5)
  - Dyspnoea [None]
  - Tachycardia [None]
  - Hyperhidrosis [None]
  - Pruritus [None]
  - Infusion related reaction [None]
